FAERS Safety Report 4832989-0 (Version None)
Quarter: 2005Q4

REPORT INFORMATION
  Report Type: 
  Country: None (occurrence: None)
  Receive Date: 20051121
  Receipt Date: 20050310
  Transmission Date: 20060501
  Serious: Yes (Hospitalization)
  Sender: FDA-Public Use
  Company Number: US-MERCK-0503USA01932

PATIENT
  Age: 58 Year
  Sex: Female
  Weight: 124 kg

DRUGS (13)
  1. VIOXX [Suspect]
     Indication: OSTEOARTHRITIS
     Route: 048
     Dates: start: 20020101, end: 20040901
  2. DIOVAN [Concomitant]
     Indication: HYPERTENSION
     Route: 065
     Dates: start: 20010829, end: 20040101
  3. SYNTHROID [Concomitant]
     Indication: HYPOTHYROIDISM
     Route: 065
  4. ELAVIL [Concomitant]
     Indication: DIABETIC NEUROPATHY
     Route: 048
  5. NIFEDIPINE [Concomitant]
     Indication: HYPERTENSION
     Route: 065
  6. MENEST [Concomitant]
     Indication: HORMONE REPLACEMENT THERAPY
     Route: 065
  7. AMARYL [Concomitant]
     Indication: DIABETES MELLITUS
     Route: 065
  8. ACTOS [Concomitant]
     Indication: DIABETES MELLITUS
     Route: 065
  9. METFORMIN [Concomitant]
     Route: 065
  10. ACIPHEX [Concomitant]
     Indication: GASTROOESOPHAGEAL REFLUX DISEASE
     Route: 065
  11. DETROL [Concomitant]
     Indication: STRESS INCONTINENCE
     Route: 065
  12. GLIPIZIDE [Concomitant]
     Indication: DIABETES MELLITUS
     Route: 065
  13. NEXIUM [Concomitant]
     Route: 065

REACTIONS (15)
  - ANXIETY [None]
  - ARTERIOSCLEROSIS [None]
  - CEREBROVASCULAR ACCIDENT [None]
  - DIABETES MELLITUS [None]
  - DIABETES MELLITUS INADEQUATE CONTROL [None]
  - DIABETIC NEUROPATHY [None]
  - EMOTIONAL DISTRESS [None]
  - GASTROENTERITIS [None]
  - GASTROOESOPHAGEAL REFLUX DISEASE [None]
  - HYPERTENSION [None]
  - ISCHAEMIC STROKE [None]
  - NEUROPATHY PERIPHERAL [None]
  - REFUSAL OF TREATMENT BY PATIENT [None]
  - THYROID DISORDER [None]
  - TRANSIENT ISCHAEMIC ATTACK [None]
